FAERS Safety Report 10518252 (Version 1)
Quarter: 2014Q4

REPORT INFORMATION
  Report Type: Spontaneous
  Country: US (occurrence: None)
  Receive Date: 20141014
  Receipt Date: 20141014
  Transmission Date: 20150528
  Serious: Yes (Death, Hospitalization)
  Sender: FDA-Public Use
  Company Number: None

PATIENT
  Age: 58 Year
  Sex: Female
  Weight: 72.2 kg

DRUGS (2)
  1. CYTARABINE. [Suspect]
     Active Substance: CYTARABINE
     Dates: end: 20140927
  2. IDARUBICIN [Suspect]
     Active Substance: IDARUBICIN
     Dates: end: 20140925

REACTIONS (12)
  - Febrile neutropenia [None]
  - Hypotension [None]
  - Multi-organ failure [None]
  - Cerebral haemorrhage [None]
  - Septic shock [None]
  - Clostridium test positive [None]
  - Unresponsive to stimuli [None]
  - Acute kidney injury [None]
  - Pseudomonas test positive [None]
  - Staphylococcus test positive [None]
  - Pseudomonas infection [None]
  - Brain oedema [None]

NARRATIVE: CASE EVENT DATE: 20141005
